FAERS Safety Report 8499479-8 (Version None)
Quarter: 2012Q2

REPORT INFORMATION
  Report Type: 
  Country: None (occurrence: None)
  Receive Date: 20120405
  Receipt Date: 20100406
  Transmission Date: 20120825
  Serious: Yes (Hospitalization, Other)
  Sender: FDA-Public Use
  Company Number: PHEH2010US02758

PATIENT
  Age: 74 Year
  Sex: Female
  Weight: 72.6 kg

DRUGS (5)
  1. SIMVASTATIN [Concomitant]
  2. RECLAST [Suspect]
     Indication: OSTEOPOROSIS
     Dosage: 5 MG, UNK, IV INFUSION
     Route: 042
     Dates: start: 20100210
  3. LOPERYL (LOPERAMIDE HYDROCHLORIDE) [Concomitant]
  4. LISINOPRIL [Concomitant]
  5. PROTON PUMP INHIBITORS (NO INGREDIENTS/SUBSTANCES) [Concomitant]

REACTIONS (12)
  - FATIGUE [None]
  - RENAL FAILURE ACUTE [None]
  - FACE OEDEMA [None]
  - HAEMOGLOBIN DECREASED [None]
  - HAEMODIALYSIS [None]
  - CREATININE RENAL CLEARANCE INCREASED [None]
  - DECREASED APPETITE [None]
  - BLOOD ALBUMIN DECREASED [None]
  - LETHARGY [None]
  - RENAL CYST [None]
  - BLOOD UREA INCREASED [None]
  - URINE OUTPUT DECREASED [None]
